FAERS Safety Report 6700979-9 (Version None)
Quarter: 2010Q2

REPORT INFORMATION
  Report Type: 
  Country: None (occurrence: None)
  Receive Date: 20100428
  Receipt Date: 20100420
  Transmission Date: 20101027
  Serious: Yes (Hospitalization)
  Sender: FDA-Public Use
  Company Number: CH-PFIZER INC-2010050092

PATIENT
  Age: 41 Year
  Sex: Male

DRUGS (2)
  1. SALAZOPYRIN [Suspect]
     Dosage: UNK
     Route: 048
     Dates: start: 20100223, end: 20100321
  2. DICLOFENAC [Suspect]
     Dosage: UNK
     Route: 048
     Dates: start: 20100223, end: 20100324

REACTIONS (1)
  - HISTIOCYTOSIS HAEMATOPHAGIC [None]
